FAERS Safety Report 7498863-9 (Version None)
Quarter: 2011Q2

REPORT INFORMATION
  Report Type: 
  Country: None (occurrence: None)
  Receive Date: 20110524
  Receipt Date: 20110503
  Transmission Date: 20111010
  Serious: Yes (Hospitalization, Other)
  Sender: FDA-Public Use
  Company Number: US-BAYER-201022900NA

PATIENT
  Age: 24 Year
  Sex: Female
  Weight: 126.98 kg

DRUGS (9)
  1. YASMIN [Suspect]
     Indication: CONTRACEPTION
     Dosage: UNK
     Dates: start: 20041101, end: 20050501
  2. YASMIN [Suspect]
     Indication: POLYCYSTIC OVARIES
  3. ALBUTEROL SULFATE AUTOHALER [Concomitant]
  4. VICODIN [Concomitant]
  5. FLUCONAZOLE [Concomitant]
     Dosage: UNK
     Dates: start: 20040101, end: 20100101
  6. MULTI-VITAMIN [Concomitant]
  7. PHENERGAN HCL [Concomitant]
  8. YASMIN [Suspect]
     Indication: ACNE
  9. METFORMIN HCL [Concomitant]

REACTIONS (6)
  - DEHYDRATION [None]
  - NAUSEA [None]
  - GALLBLADDER DISORDER [None]
  - VOMITING [None]
  - CHOLELITHIASIS [None]
  - CHOLECYSTITIS CHRONIC [None]
